FAERS Safety Report 9779987 (Version 1)
Quarter: 2013Q4

REPORT INFORMATION
  Report Type: Spontaneous
  Country: US (occurrence: US)
  Receive Date: 20131223
  Receipt Date: 20131223
  Transmission Date: 20140711
  Serious: No
  Sender: FDA-Public Use
  Company Number: US-B.I. PHARMACEUTICALS,INC./RIDGEFIELD-2013-BI-41571BP

PATIENT
  Age: 59 Year
  Sex: Female
  Weight: 88 kg

DRUGS (3)
  1. MICARDIS [Suspect]
     Indication: HYPERTENSION
     Dosage: 40 MG
     Route: 048
     Dates: start: 20131108, end: 20131130
  2. METFORMIN [Concomitant]
     Indication: DIABETES MELLITUS
     Route: 048
  3. INSULIN [Concomitant]
     Indication: DIABETES MELLITUS
     Dosage: FORMULATION:SUBCUTANEOUS
     Route: 058

REACTIONS (4)
  - Paraesthesia [Recovered/Resolved]
  - Pain in extremity [Recovered/Resolved]
  - Insomnia [Recovered/Resolved]
  - Limb discomfort [Not Recovered/Not Resolved]
